APPROVED DRUG PRODUCT: CITALOPRAM HYDROBROMIDE
Active Ingredient: CITALOPRAM HYDROBROMIDE
Strength: EQ 10MG BASE/5ML
Dosage Form/Route: SOLUTION;ORAL
Application: A077629 | Product #001 | TE Code: AA
Applicant: CHARTWELL MOLECULAR HOLDINGS LLC
Approved: Jun 14, 2006 | RLD: No | RS: No | Type: RX